FAERS Safety Report 5668721-0 (Version None)
Quarter: 2008Q1

REPORT INFORMATION
  Report Type: 
  Country: None (occurrence: None)
  Receive Date: 20080311
  Receipt Date: 20080311
  Transmission Date: 20080703
  Serious: No
  Sender: FDA-Public Use
  Company Number: None

PATIENT
  Age: 75 Year
  Sex: Male

DRUGS (2)
  1. ONDANSETRON [Suspect]
     Indication: NAUSEA
     Dosage: 4MG PRN IV
     Route: 042
     Dates: start: 20070711, end: 20070715
  2. ONDANSETRON [Suspect]
     Indication: VOMITING
     Dosage: 4MG PRN IV
     Route: 042
     Dates: start: 20070711, end: 20070715

REACTIONS (2)
  - ANAPHYLACTIC REACTION [None]
  - LOCAL SWELLING [None]
